FAERS Safety Report 8594467-5 (Version None)
Quarter: 2012Q3

REPORT INFORMATION
  Report Type: 
  Country: None (occurrence: None)
  Receive Date: 20120815
  Receipt Date: 20120807
  Transmission Date: 20120928
  Serious: Yes (Other)
  Sender: FDA-Public Use
  Company Number: JP-009507513-1207JPN008153

PATIENT

DRUGS (7)
  1. REBETOL [Suspect]
     Indication: HEPATITIS C
     Dosage: 600 MG, QD
     Route: 048
     Dates: start: 20120704
  2. TELAVIC [Suspect]
     Indication: HEPATITIS C
     Dosage: 2250 MG, QD
     Route: 048
     Dates: start: 20120704, end: 20120706
  3. PEG-INTRON [Suspect]
     Indication: HEPATITIS C
     Dosage: 100MCG
     Route: 058
     Dates: start: 20120704
  4. TELAVIC [Suspect]
     Dosage: UNK
  5. VOLTAREN-XR [Suspect]
     Indication: ADVERSE EVENT
     Dosage: 37.5 MG, QD
     Route: 048
     Dates: start: 20120704
  6. METFORMIN HYDROCHLORIDE [Concomitant]
     Dosage: 500 MG, QD
  7. NOVORAPID [Concomitant]
     Dosage: 36 UNITS
     Route: 042

REACTIONS (2)
  - RASH [None]
  - RENAL DISORDER [None]
